FAERS Safety Report 6287469-5 (Version None)
Quarter: 2009Q3

REPORT INFORMATION
  Report Type: 
  Country: None (occurrence: None)
  Receive Date: 20090727
  Receipt Date: 20090723
  Transmission Date: 20100115
  Serious: Yes (Death, Hospitalization)
  Sender: FDA-Public Use
  Company Number: 2007SP024473

PATIENT
  Age: 55 Year
  Sex: Male
  Weight: 52 kg

DRUGS (3)
  1. TEMODAL [Suspect]
     Indication: GLIOBLASTOMA MULTIFORME
     Dosage: 150 MG/M2;QD;PO
     Route: 048
     Dates: start: 20060923, end: 20060927
  2. BAKTAR [Concomitant]
  3. NASEA OD [Concomitant]

REACTIONS (4)
  - ACCIDENT [None]
  - CHOLECYSTITIS [None]
  - CHRONIC OBSTRUCTIVE PULMONARY DISEASE [None]
  - CONDITION AGGRAVATED [None]
